FAERS Safety Report 6280653-6 (Version None)
Quarter: 2009Q3

REPORT INFORMATION
  Report Type: 
  Country: None (occurrence: None)
  Receive Date: 20090724
  Receipt Date: 20081031
  Transmission Date: 20100115
  Serious: Yes (Other)
  Sender: FDA-Public Use
  Company Number: A0755253A

PATIENT
  Age: 75 Year
  Sex: Female
  Weight: 65.9 kg

DRUGS (2)
  1. AVANDIA [Suspect]
     Dosage: 8MG PER DAY
     Route: 048
     Dates: start: 20020101, end: 20071206
  2. CITRACAL [Concomitant]

REACTIONS (4)
  - HIP FRACTURE [None]
  - LOWER LIMB FRACTURE [None]
  - OSTEOPOROSIS [None]
  - UPPER LIMB FRACTURE [None]
